FAERS Safety Report 12584083 (Version 2)
Quarter: 2016Q3

REPORT INFORMATION
  Report Type: Spontaneous
  Country: GB (occurrence: GB)
  Receive Date: 20160722
  Receipt Date: 20160809
  Transmission Date: 20161109
  Serious: Yes (Other)
  Sender: FDA-Public Use
  Company Number: PHHY2016GB097275

PATIENT
  Age: 90 Year
  Sex: Male
  Weight: 76 kg

DRUGS (4)
  1. FLIXONASE AQUEOUS [Concomitant]
     Indication: PRODUCT USED FOR UNKNOWN INDICATION
     Dosage: ONGOING.
     Route: 045
  2. CETIRIZINE [Suspect]
     Active Substance: CETIRIZINE HYDROCHLORIDE
     Indication: RHINORRHOEA
     Dosage: 10 MG, UNK
     Route: 048
     Dates: start: 20160510, end: 20160519
  3. FLIXONASE AQUEOUS [Concomitant]
     Dosage: UNK
  4. XARELTO [Concomitant]
     Active Substance: RIVAROXABAN
     Indication: PRODUCT USED FOR UNKNOWN INDICATION
     Route: 065

REACTIONS (2)
  - Abnormal dreams [Unknown]
  - Hallucination [Unknown]

NARRATIVE: CASE EVENT DATE: 20160513
